FAERS Safety Report 18244215 (Version 1)
Quarter: 2020Q3

REPORT INFORMATION
  Report Type: Spontaneous
  Country: US (occurrence: US)
  Receive Date: 20200908
  Receipt Date: 20200908
  Transmission Date: 20201103
  Serious: Yes (Other)
  Sender: FDA-Public Use
  Company Number: US-PFIZER INC-2020344607

PATIENT
  Age: 46 Year
  Sex: Male

DRUGS (1)
  1. LEVOXYL [Suspect]
     Active Substance: LEVOTHYROXINE SODIUM
     Indication: AUTOIMMUNE THYROIDITIS
     Dosage: 88 UG, 1X/DAY

REACTIONS (3)
  - Poor quality product administered [Unknown]
  - Seizure [Unknown]
  - Product colour issue [Unknown]

NARRATIVE: CASE EVENT DATE: 20200902
